FAERS Safety Report 8815359 (Version 7)
Quarter: 2013Q3

REPORT INFORMATION
  Report Type: Spontaneous
  Country: US (occurrence: US)
  Receive Date: 20120928
  Receipt Date: 20130821
  Transmission Date: 20140515
  Serious: Yes (Hospitalization, Other)
  Sender: FDA-Public Use
  Company Number: US-009507513-1209USA010883

PATIENT
  Sex: Female
  Weight: 60.77 kg

DRUGS (4)
  1. FOSAMAX [Suspect]
     Indication: OSTEOPOROSIS
     Dosage: 10 MG, UNK
     Route: 048
     Dates: start: 20000530, end: 20010717
  2. FOSAMAX [Suspect]
     Dosage: 70 MG, UNK
     Route: 048
  3. FLUDROCORTISONE ACETATE [Concomitant]
     Indication: GLUCOCORTICOID DEFICIENCY
     Dosage: 0.1 MG, DAILY
     Route: 048
  4. HYDROCORTISONE [Concomitant]
     Indication: GLUCOCORTICOID DEFICIENCY
     Dosage: 10 MG QAM, 5 MG Q LUNCH
     Route: 048

REACTIONS (34)
  - Femur fracture [Unknown]
  - Intramedullary rod insertion [Unknown]
  - Anaemia postoperative [Unknown]
  - Skin cancer [Unknown]
  - Surgery [Unknown]
  - Surgery [Unknown]
  - Atypical femur fracture [Unknown]
  - Foot fracture [Unknown]
  - Ulna fracture [Unknown]
  - Vitamin D deficiency [Unknown]
  - Nerve injury [Recovering/Resolving]
  - Polyglandular autoimmune syndrome type II [Unknown]
  - Bronchitis [Unknown]
  - Acoustic neuroma [Unknown]
  - Inguinal hernia repair [Unknown]
  - Bladder operation [Unknown]
  - Foot operation [Unknown]
  - Vocal cord neoplasm [Unknown]
  - Cardiomegaly [Unknown]
  - Road traffic accident [Unknown]
  - Spinal osteoarthritis [Unknown]
  - Facet joint syndrome [Unknown]
  - Adverse event [Unknown]
  - Hypothyroidism [Unknown]
  - Osteopenia [Unknown]
  - Anaemia vitamin B12 deficiency [Unknown]
  - Palpitations [Unknown]
  - Anaemia [Unknown]
  - Gastroenteritis viral [Recovering/Resolving]
  - Muscular weakness [Unknown]
  - Fatigue [Unknown]
  - Weight decreased [Unknown]
  - Ataxia [Unknown]
  - Gastrooesophageal reflux disease [Unknown]
